FAERS Safety Report 9745126 (Version 1)
Quarter: 2013Q4

REPORT INFORMATION
  Report Type: Report from Study
  Country: US (occurrence: US)
  Receive Date: 20131211
  Receipt Date: 20131211
  Transmission Date: 20140711
  Serious: Yes (Disabling)
  Sender: FDA-Public Use
  Company Number: US-ROCHE-1315173

PATIENT
  Sex: Male

DRUGS (5)
  1. LUCENTIS [Suspect]
     Indication: EYE HAEMORRHAGE
     Route: 065
  2. NOVOLOG [Concomitant]
     Indication: DIABETES MELLITUS
  3. LEVEMIR [Concomitant]
     Indication: DIABETES MELLITUS
  4. ELIQUIS [Concomitant]
  5. LEVAQUIN [Concomitant]

REACTIONS (5)
  - Altered visual depth perception [Unknown]
  - Intraocular pressure increased [Unknown]
  - Lacrimation increased [Unknown]
  - Photophobia [Unknown]
  - Blindness unilateral [Unknown]
